FAERS Safety Report 5666755-3 (Version None)
Quarter: 2008Q1

REPORT INFORMATION
  Report Type: 
  Country: None (occurrence: None)
  Receive Date: 20080315
  Receipt Date: 20071227
  Transmission Date: 20080703
  Serious: No
  Sender: FDA-Public Use
  Company Number: US-ABBOTT-07P-163-0431671-00

PATIENT
  Sex: Female

DRUGS (4)
  1. HUMIRA [Suspect]
     Indication: RHEUMATOID ARTHRITIS
     Route: 058
     Dates: start: 20070601, end: 20071001
  2. HUMIRA [Suspect]
     Dates: end: 20071101
  3. HUMIRA [Suspect]
     Dates: start: 20071201, end: 20071201
  4. METHOTREXATE [Concomitant]
     Indication: RHEUMATOID ARTHRITIS
     Route: 050

REACTIONS (5)
  - EYE INFLAMMATION [None]
  - MALIGNANT MELANOMA [None]
  - NASOPHARYNGITIS [None]
  - TINEA PEDIS [None]
  - URINARY TRACT INFECTION [None]
